FAERS Safety Report 12194867 (Version 1)
Quarter: 2016Q1

REPORT INFORMATION
  Report Type: Spontaneous
  Country: US (occurrence: US)
  Receive Date: 20160321
  Receipt Date: 20160321
  Transmission Date: 20160526
  Serious: No
  Sender: FDA-Public Use
  Company Number: US-GLAXOSMITHKLINE-US2016GSK034871

PATIENT
  Sex: Female

DRUGS (3)
  1. SUMATRIPTAN. [Suspect]
     Active Substance: SUMATRIPTAN
  2. RELPAX TABLET [Concomitant]
     Indication: HEADACHE
     Dosage: 40 MG, PRN
     Route: 048
  3. RELPAX TABLET [Concomitant]
     Indication: MIGRAINE

REACTIONS (1)
  - Drug hypersensitivity [Unknown]
